FAERS Safety Report 7428534-6 (Version None)
Quarter: 2011Q2

REPORT INFORMATION
  Report Type: 
  Country: None (occurrence: None)
  Receive Date: 20110413
  Receipt Date: 20110407
  Transmission Date: 20111010
  Serious: Yes (Hospitalization, Other)
  Sender: FDA-Public Use
  Company Number: 2010JP006695

PATIENT
  Age: 51 Year
  Sex: Female
  Weight: 40 kg

DRUGS (13)
  1. TAKEPRON (LANSOPRAZOLE) [Concomitant]
  2. ACTONEL [Concomitant]
  3. PREDNISOLONE [Concomitant]
  4. FOLIC ACID [Concomitant]
  5. CELECOXIB [Suspect]
     Indication: STILL'S DISEASE ADULT ONSET
     Dosage: 200 MG, BID, ORAL
     Route: 048
     Dates: start: 20100130
  6. PROGRAF [Suspect]
     Indication: STILL'S DISEASE ADULT ONSET
     Dosage: 3 MG, UID/QD, ORAL ; 2 MG, UID/QD, ORAL; 3 MG, UID/QD, ORAL ; 3 MG, UID/QD, ORAL
     Route: 048
     Dates: start: 20100724, end: 20100826
  7. PROGRAF [Suspect]
     Indication: STILL'S DISEASE ADULT ONSET
     Dosage: 3 MG, UID/QD, ORAL ; 2 MG, UID/QD, ORAL; 3 MG, UID/QD, ORAL ; 3 MG, UID/QD, ORAL
     Route: 048
     Dates: start: 20100914, end: 20101027
  8. PROGRAF [Suspect]
     Indication: STILL'S DISEASE ADULT ONSET
     Dosage: 3 MG, UID/QD, ORAL ; 2 MG, UID/QD, ORAL; 3 MG, UID/QD, ORAL ; 3 MG, UID/QD, ORAL
     Route: 048
     Dates: start: 20100127, end: 20100709
  9. PROGRAF [Suspect]
     Indication: STILL'S DISEASE ADULT ONSET
     Dosage: 3 MG, UID/QD, ORAL ; 2 MG, UID/QD, ORAL; 3 MG, UID/QD, ORAL ; 3 MG, UID/QD, ORAL
     Route: 048
     Dates: start: 20100113, end: 20100126
  10. ROHYPNOL (FLUNITRAZEPAM) [Concomitant]
  11. METHOTREXATE [Concomitant]
  12. DIOVAN [Concomitant]
  13. PREDNISOLONE [Concomitant]

REACTIONS (3)
  - COLITIS ISCHAEMIC [None]
  - GASTROINTESTINAL ULCER [None]
  - OFF LABEL USE [None]
